FAERS Safety Report 7535584-8 (Version None)
Quarter: 2011Q2

REPORT INFORMATION
  Report Type: 
  Country: None (occurrence: None)
  Receive Date: 20110609
  Receipt Date: 20110513
  Transmission Date: 20111010
  Serious: Yes (Other)
  Sender: FDA-Public Use
  Company Number: US-BAYER-201039440NA

PATIENT
  Age: 39 Year
  Sex: Female
  Weight: 74.83 kg

DRUGS (18)
  1. YAZ [Suspect]
     Indication: CONTRACEPTION
     Route: 048
     Dates: start: 20020101
  2. YASMIN [Suspect]
     Indication: CONTRACEPTION
     Dosage: UNK UNK, QD
     Route: 048
     Dates: start: 20020101
  3. SPECTRACEF [Concomitant]
     Dosage: 200 MG, UNK
  4. LORAZEPAM [Concomitant]
     Dosage: 0.5 MG, UNK
     Route: 048
  5. CELEXA [Concomitant]
     Dosage: NOT SPECIFIED
     Route: 048
  6. PROPOXYPHENE HYDROCHLORIDE [Concomitant]
     Dosage: 100-650 MG, UNK
     Route: 048
  7. HYDROMET [HYDROCHLOROTHIAZIDE,METHYLDOPA] [Concomitant]
     Dosage: 5-1.5 (OR 0.5-1.5) MG, UNK
     Route: 048
  8. ZALEPLON [Concomitant]
     Dosage: 5 MG, UNK
     Route: 048
  9. VESICARE [Concomitant]
     Dosage: 5 MG, UNK
     Route: 048
  10. CYMBALTA [Concomitant]
     Dosage: 60 MG, UNK
     Route: 048
  11. SYMBICORT [Concomitant]
     Dosage: 4.5 ?G, UNK
     Route: 048
  12. YAZ [Suspect]
     Indication: PREMENSTRUAL SYNDROME
  13. YASMIN [Suspect]
     Indication: PREMENSTRUAL SYNDROME
  14. SYMBICORT [Concomitant]
     Dosage: 160 ?G, UNK
     Route: 048
  15. LISINOPRIL [Concomitant]
     Dosage: 20 MG, UNK
     Route: 048
     Dates: start: 20091012
  16. HYDROCHLOROTHIAZIDE [Concomitant]
     Dosage: 12.5 MG, UNK
     Route: 048
  17. OMEGA 3 FATTY ACIDS [Concomitant]
     Dosage: 1 MG (GM?), UNK
     Route: 048
  18. ACIPHEX [Concomitant]

REACTIONS (4)
  - CHOLECYSTITIS CHRONIC [None]
  - PAIN [None]
  - GALLBLADDER DISORDER [None]
  - CHOLELITHIASIS [None]
